FAERS Safety Report 10450940 (Version 1)
Quarter: 2014Q3

REPORT INFORMATION
  Report Type: Report from Study
  Country: AR (occurrence: AR)
  Receive Date: 20140912
  Receipt Date: 20140912
  Transmission Date: 20150326
  Serious: Yes (Hospitalization, Other)
  Sender: FDA-Public Use
  Company Number: PHHY2014AR118153

PATIENT
  Age: 75 Year
  Sex: Female

DRUGS (3)
  1. DIOVAN [Suspect]
     Active Substance: VALSARTAN
     Dosage: 160 MG DAILY
  2. VOLTAREN [Concomitant]
     Active Substance: DICLOFENAC SODIUM
     Dosage: UNK UKN, UNK
  3. DIOVAN [Suspect]
     Active Substance: VALSARTAN
     Indication: HYPERTENSION
     Dosage: 160 MG, DAILY
     Route: 048

REACTIONS (8)
  - Blood pressure abnormal [Unknown]
  - Oedema peripheral [Unknown]
  - Osteoarthritis [Unknown]
  - Memory impairment [Not Recovered/Not Resolved]
  - Cerebrovascular accident [Unknown]
  - Fall [Unknown]
  - Limb injury [Unknown]
  - Sedation [Unknown]

NARRATIVE: CASE EVENT DATE: 201010
